FAERS Safety Report 23216056 (Version 1)
Quarter: 2023Q4

REPORT INFORMATION
  Report Type: Spontaneous
  Country: CH (occurrence: CH)
  Receive Date: 20231122
  Receipt Date: 20231122
  Transmission Date: 20240110
  Serious: Yes (Other)
  Sender: FDA-Public Use
  Company Number: CH-SM-2023-17378

PATIENT
  Age: 51 Year
  Sex: Female
  Weight: 55 kg

DRUGS (6)
  1. OCREVUS [Suspect]
     Active Substance: OCRELIZUMAB
     Indication: Product used for unknown indication
     Dosage: IN TOTAL
     Route: 065
     Dates: start: 20230216, end: 20230216
  2. OCREVUS [Suspect]
     Active Substance: OCRELIZUMAB
     Dosage: END OF FEBRUARY; IN TOTAL
     Route: 065
     Dates: start: 202302, end: 202302
  3. OCREVUS [Suspect]
     Active Substance: OCRELIZUMAB
     Dosage: IN TOTAL
     Route: 065
     Dates: start: 20231003, end: 20231003
  4. AMLODIPINE [Concomitant]
     Active Substance: AMLODIPINE BESYLATE
     Dosage: STARTING ABOUT 3 YEARS AGO
     Dates: start: 2020
  5. ASPIRIN [Concomitant]
     Active Substance: ASPIRIN
     Dosage: STARTING ABOUT 1.5 YEARS AGO
     Dates: start: 2022
  6. DEXAMETHASONE [Concomitant]
     Active Substance: DEXAMETHASONE
     Dosage: 2 MG FOR 3 DAYS ABOUT 1 MONTH AGO FOR COVID

REACTIONS (3)
  - Alopecia [Recovered/Resolved]
  - Disease recurrence [Recovered/Resolved]
  - Hair disorder [Not Recovered/Not Resolved]

NARRATIVE: CASE EVENT DATE: 20230226
